FAERS Safety Report 15433832 (Version 1)
Quarter: 2018Q3

REPORT INFORMATION
  Report Type: Spontaneous
  Country: US (occurrence: US)
  Receive Date: 20180921
  Receipt Date: 20180921
  Transmission Date: 20181010
  Serious: No
  Sender: FDA-Public Use
  Company Number: None

PATIENT
  Age: 54 Year
  Sex: Female

DRUGS (1)
  1. COSENTYX [Suspect]
     Active Substance: SECUKINUMAB
     Dates: start: 201805

REACTIONS (7)
  - Rash pustular [None]
  - Product distribution issue [None]
  - Psoriasis [None]
  - Rash [None]
  - Drug ineffective [None]
  - General physical health deterioration [None]
  - Drug dose omission [None]

NARRATIVE: CASE EVENT DATE: 20180920
